FAERS Safety Report 20141288 (Version 1)
Quarter: 2021Q4

REPORT INFORMATION
  Report Type: Spontaneous
  Country: KZ (occurrence: KZ)
  Receive Date: 20211202
  Receipt Date: 20211202
  Transmission Date: 20220303
  Serious: Yes (Other)
  Sender: FDA-Public Use
  Company Number: KZ-SA-2021SA397739

PATIENT
  Age: 33 Year
  Sex: Female

DRUGS (2)
  1. ENOXAPARIN SODIUM [Suspect]
     Active Substance: ENOXAPARIN SODIUM
     Indication: Anticoagulant therapy
     Dosage: 0.4 MG, QD
  2. CEFTRIAXONE SODIUM [Suspect]
     Active Substance: CEFTRIAXONE SODIUM
     Indication: Antibiotic prophylaxis
     Dosage: UNK UNK, BID

REACTIONS (3)
  - Toxic shock syndrome [Recovering/Resolving]
  - Maternal exposure during pregnancy [Recovering/Resolving]
  - Drug ineffective [Recovering/Resolving]
